FAERS Safety Report 7351471-2 (Version None)
Quarter: 2011Q1

REPORT INFORMATION
  Report Type: 
  Country: None (occurrence: None)
  Receive Date: 20110314
  Receipt Date: 20110216
  Transmission Date: 20110831
  Serious: No
  Sender: FDA-Public Use
  Company Number: US-B.I. PHARMACEUTICALS,INC./RIDGEFIELD-2011-BP-06001BP

PATIENT
  Sex: Male

DRUGS (2)
  1. ZANTAC 150 [Suspect]
     Indication: GASTRITIS
     Dosage: 300 MG
     Route: 048
     Dates: start: 20110214
  2. AMOXICILLIN [Concomitant]
     Indication: SINUSITIS

REACTIONS (1)
  - FAECES DISCOLOURED [None]
